FAERS Safety Report 17876176 (Version 1)
Quarter: 2020Q2

REPORT INFORMATION
  Report Type: Spontaneous
  Country: US (occurrence: US)
  Receive Date: 20200609
  Receipt Date: 20200609
  Transmission Date: 20200714
  Serious: Yes (Death)
  Sender: FDA-Public Use
  Company Number: None

PATIENT
  Age: 85 Year
  Sex: Female
  Weight: 74.9 kg

DRUGS (22)
  1. DEXMEDETOMIDINE. [Concomitant]
     Active Substance: DEXMEDETOMIDINE
     Dates: start: 20200603, end: 20200605
  2. BUMETANIDE. [Concomitant]
     Active Substance: BUMETANIDE
     Dates: start: 20200604, end: 20200605
  3. DEXAMETHASONE. [Concomitant]
     Active Substance: DEXAMETHASONE
     Dates: start: 20200605, end: 20200605
  4. REMDESIVIR. [Suspect]
     Active Substance: REMDESIVIR
     Indication: COVID-19
     Route: 042
     Dates: start: 20200602, end: 20200602
  5. FAMOTIDINE. [Concomitant]
     Active Substance: FAMOTIDINE
     Dates: start: 20200601, end: 20200605
  6. LEVOTHRYOXINE [Concomitant]
     Active Substance: LEVOTHYROXINE
     Dates: start: 20200602, end: 20200605
  7. NOREPINEPHRINE. [Concomitant]
     Active Substance: NOREPINEPHRINE
     Dates: start: 20200602, end: 20200602
  8. CONVALENSCENT SERUM [Concomitant]
     Dates: start: 20200602, end: 20200602
  9. HYDROCORTISONE. [Concomitant]
     Active Substance: HYDROCORTISONE
     Dates: start: 20200602, end: 20200604
  10. PIPERACILLIN AND TAZOBACTAM [Concomitant]
     Active Substance: PIPERACILLIN SODIUM\TAZOBACTAM SODIUM
     Dates: start: 20200601, end: 20200603
  11. VANCOMYCIN [Concomitant]
     Active Substance: VANCOMYCIN
     Dates: start: 20200601, end: 20200603
  12. ASCORBIC ACID. [Concomitant]
     Active Substance: ASCORBIC ACID
     Dates: start: 20200602, end: 20200605
  13. INSULIN [Concomitant]
     Active Substance: INSULIN NOS
     Dates: start: 20200602, end: 20200605
  14. MAGNESIUM SULFATE. [Concomitant]
     Active Substance: MAGNESIUM SULFATE
     Dates: start: 20200602, end: 20200605
  15. FENTANYL. [Concomitant]
     Active Substance: FENTANYL
     Dates: start: 20200601, end: 20200605
  16. REMDESIVIR. [Suspect]
     Active Substance: REMDESIVIR
     Indication: COVID-19
     Route: 042
     Dates: start: 20200603, end: 20200604
  17. LORAZEPAM. [Concomitant]
     Active Substance: LORAZEPAM
     Dates: start: 20200604, end: 20200605
  18. MIDAZOLAM. [Concomitant]
     Active Substance: MIDAZOLAM
     Dates: start: 20200601, end: 20200605
  19. CEFTRIAXONE. [Concomitant]
     Active Substance: CEFTRIAXONE
     Dates: start: 20200603, end: 20200605
  20. ESCITALOPRAM [Concomitant]
     Active Substance: ESCITALOPRAM OXALATE
     Dates: start: 20200602, end: 20200605
  21. ROCURONIUM [Concomitant]
     Active Substance: ROCURONIUM BROMIDE
     Dates: start: 20200601, end: 20200605
  22. HEPARIN [Concomitant]
     Active Substance: HEPARIN SODIUM
     Dates: start: 20200601, end: 20200605

REACTIONS (1)
  - Death [None]

NARRATIVE: CASE EVENT DATE: 20200605
